FAERS Safety Report 17908366 (Version 2)
Quarter: 2020Q3

REPORT INFORMATION
  Report Type: Spontaneous
  Country: US (occurrence: US)
  Receive Date: 20200617
  Receipt Date: 20200715
  Transmission Date: 20201103
  Serious: Yes (Other)
  Sender: FDA-Public Use
  Company Number: US-BAYER-2020-111237

PATIENT
  Age: 22 Year
  Sex: Female
  Weight: 50.34 kg

DRUGS (3)
  1. MIRENA [Suspect]
     Active Substance: LEVONORGESTREL
     Indication: CONTRACEPTION
     Dosage: 20 ?G PER DAY, CONTINUOUSLY
     Route: 015
     Dates: start: 20190626, end: 20200609
  2. MIRENA [Suspect]
     Active Substance: LEVONORGESTREL
     Indication: MENORRHAGIA
  3. TINIDAZOLE. [Concomitant]
     Active Substance: TINIDAZOLE
     Dosage: 500 MG, QID
     Route: 048
     Dates: start: 20200601, end: 20200602

REACTIONS (5)
  - Device issue [None]
  - Pelvic pain [None]
  - Asthenia [None]
  - Device dislocation [Recovered/Resolved]
  - Fatigue [None]

NARRATIVE: CASE EVENT DATE: 201906
